FAERS Safety Report 10219477 (Version 2)
Quarter: 2014Q2

REPORT INFORMATION
  Report Type: Spontaneous
  Country: US (occurrence: US)
  Receive Date: 20140605
  Receipt Date: 20140616
  Transmission Date: 20141212
  Serious: Yes (Life-Threatening, Other)
  Sender: FDA-Public Use
  Company Number: US-SA-2014SA069767

PATIENT
  Age: 50 Year
  Sex: Male

DRUGS (4)
  1. LANTUS SOLOSTAR [Suspect]
     Indication: TYPE 2 DIABETES MELLITUS
     Dosage: START DATE REPORTED AS APPROXIMATELY 2 YEARS AGO DOSE:50 UNIT(S)
     Route: 058
     Dates: start: 2012
  2. SOLOSTAR [Concomitant]
     Indication: TYPE 2 DIABETES MELLITUS
     Dates: start: 2012
  3. HUMALOG [Concomitant]
  4. TRADJENTA [Concomitant]

REACTIONS (3)
  - Cerebrovascular accident [Unknown]
  - Blindness unilateral [Unknown]
  - Eye disorder [Unknown]
